FAERS Safety Report 5970982-5 (Version None)
Quarter: 2008Q4

REPORT INFORMATION
  Report Type: 
  Country: None (occurrence: None)
  Receive Date: 20081128
  Receipt Date: 20081120
  Transmission Date: 20090506
  Serious: Yes (Life-Threatening, Hospitalization)
  Sender: FDA-Public Use
  Company Number: PHHO2008PL01711

PATIENT
  Sex: Male
  Weight: 97 kg

DRUGS (3)
  1. TASIGNA [Suspect]
     Indication: CHRONIC MYELOID LEUKAEMIA
     Dosage: 400 MG, BID
     Route: 048
     Dates: start: 20070123, end: 20080207
  2. ACARD [Concomitant]
  3. TORVACARD [Concomitant]

REACTIONS (14)
  - CARDIAC FAILURE [None]
  - CARDIOMEGALY [None]
  - CHRONIC MYELOID LEUKAEMIA [None]
  - CONGESTIVE CARDIOMYOPATHY [None]
  - CORONARY ANGIOPLASTY [None]
  - CORONARY ARTERIAL STENT INSERTION [None]
  - CORONARY ARTERY DISEASE [None]
  - DILATATION VENTRICULAR [None]
  - DYSPNOEA [None]
  - HYPERLIPIDAEMIA [None]
  - LEFT ATRIAL DILATATION [None]
  - LEFT VENTRICULAR FAILURE [None]
  - PNEUMONITIS [None]
  - PYREXIA [None]
